FAERS Safety Report 7819966-2 (Version None)
Quarter: 2011Q4

REPORT INFORMATION
  Report Type: 
  Country: None (occurrence: None)
  Receive Date: 20111018
  Receipt Date: 20110609
  Transmission Date: 20120403
  Serious: No
  Sender: FDA-Public Use
  Company Number: US-ASTRAZENECA-2010SE42247

PATIENT
  Age: 24873 Day
  Sex: Female

DRUGS (15)
  1. SYMBICORT [Suspect]
     Dosage: 160/4.5 MCG UNKNOWN
     Route: 055
  2. LYRICA [Concomitant]
  3. MIRAPEX [Concomitant]
  4. PLAQUENIL [Concomitant]
     Indication: SJOGREN'S SYNDROME
  5. TOFRANIL [Concomitant]
  6. PRISTIQ [Concomitant]
  7. ESTRADIOL [Concomitant]
  8. SEROQUEL XR [Suspect]
     Route: 048
     Dates: start: 20100101
  9. RESTASIS [Concomitant]
     Indication: DRY EYE
  10. CELEBREX [Concomitant]
  11. SEROQUEL XR [Suspect]
     Indication: BIPOLAR DISORDER
     Route: 048
     Dates: end: 20100101
  12. LORTAB [Concomitant]
  13. FUROSEMIDE [Concomitant]
  14. PREVACID [Concomitant]
  15. SOMA [Concomitant]

REACTIONS (14)
  - INSOMNIA [None]
  - PRODUCTIVE COUGH [None]
  - ACCIDENT [None]
  - SINUS DISORDER [None]
  - DRUG DOSE OMISSION [None]
  - ANGER [None]
  - DEPRESSION [None]
  - PERSONALITY CHANGE [None]
  - COUGH [None]
  - PAIN [None]
  - RHINORRHOEA [None]
  - HYPERSENSITIVITY [None]
  - PANIC ATTACK [None]
  - INJURY [None]
